FAERS Safety Report 10136161 (Version 1)
Quarter: 2014Q2

REPORT INFORMATION
  Report Type: Spontaneous
  Country: IT (occurrence: IT)
  Receive Date: 20140429
  Receipt Date: 20140429
  Transmission Date: 20141212
  Serious: Yes (Other)
  Sender: FDA-Public Use
  Company Number: IT-DRREDDYS-GER/ITL/14/0039800

PATIENT
  Age: 66 Year
  Sex: Female

DRUGS (1)
  1. CLOPIDOGREL DR. REDDYS 75 MG COMPRESSE RIVESTITE CON FILM [Suspect]
     Indication: ARRHYTHMIA
     Route: 048

REACTIONS (3)
  - Erythema [Unknown]
  - Vomiting [Unknown]
  - Pruritus [Unknown]
